FAERS Safety Report 21675795 (Version 2)
Quarter: 2024Q2

REPORT INFORMATION
  Report Type: Report from Study
  Country: US (occurrence: None)
  Receive Date: 20221202
  Receipt Date: 20240407
  Transmission Date: 20240716
  Serious: Yes (Death, Hospitalization, Other)
  Sender: FDA-Public Use
  Company Number: 2022A394032

PATIENT
  Age: 31049 Day
  Sex: Female
  Weight: 54 kg

DRUGS (1)
  1. BREZTRI [Suspect]
     Active Substance: BUDESONIDE\FORMOTEROL\GLYCOPYRROLATE
     Dosage: 2 PUFFS TWO TIMES A DAY
     Route: 055

REACTIONS (2)
  - Pancreatitis [Fatal]
  - Chronic obstructive pulmonary disease [Unknown]

NARRATIVE: CASE EVENT DATE: 20221125
